FAERS Safety Report 18755790 (Version 1)
Quarter: 2021Q1

REPORT INFORMATION
  Report Type: Spontaneous
  Country: US (occurrence: US)
  Receive Date: 20210115
  Receipt Date: 20210115
  Transmission Date: 20210419
  Serious: No
  Sender: FDA-Public Use
  Company Number: None

PATIENT
  Age: 57 Year
  Sex: Male
  Weight: 81 kg

DRUGS (9)
  1. VITAMIN D3 [Concomitant]
     Active Substance: CHOLECALCIFEROL
  2. FISH OIL [Concomitant]
     Active Substance: FISH OIL
  3. LEVULAN KERASTICK [Suspect]
     Active Substance: AMINOLEVULINIC ACID HYDROCHLORIDE
     Indication: ACTINIC KERATOSIS
     Dosage: ?          OTHER FREQUENCY:ONE TIME THERAPY;?
     Route: 061
     Dates: start: 20210114, end: 20210114
  4. DOXYCYCLINE. [Concomitant]
     Active Substance: DOXYCYCLINE
  5. CETIRIZINE [Concomitant]
     Active Substance: CETIRIZINE HYDROCHLORIDE
  6. NUGENIX TOTAL?T [Concomitant]
  7. GNC MEN^E PROSTRATE FORMULA [Concomitant]
  8. BLU?U (DEVICE) [Suspect]
     Active Substance: DEVICE
  9. TAMAFLEX COMPLETE [Concomitant]

REACTIONS (1)
  - Sunburn [None]

NARRATIVE: CASE EVENT DATE: 20210114
